FAERS Safety Report 25199686 (Version 2)
Quarter: 2025Q2

REPORT INFORMATION
  Report Type: Report from Study
  Country: DE (occurrence: DE)
  Receive Date: 20250415
  Receipt Date: 20250603
  Transmission Date: 20250717
  Serious: Yes (Hospitalization)
  Sender: ABBVIE
  Company Number: DE-ABBVIE-6224430

PATIENT
  Age: 56 Year
  Sex: Female

DRUGS (1)
  1. RINVOQ [Suspect]
     Active Substance: UPADACITINIB
     Indication: Product used for unknown indication
     Route: 048
     Dates: start: 202010

REACTIONS (4)
  - Meniscus injury [Recovered/Resolved]
  - Synovitis [Recovered/Resolved]
  - Meniscal degeneration [Recovered/Resolved]
  - Cartilage injury [Recovered/Resolved]

NARRATIVE: CASE EVENT DATE: 20240607
